FAERS Safety Report 10775955 (Version 1)
Quarter: 2015Q1

REPORT INFORMATION
  Report Type: Spontaneous
  Country: US (occurrence: None)
  Receive Date: 20150205
  Receipt Date: 20150205
  Transmission Date: 20150721
  Serious: Yes (Other)
  Sender: FDA-Public Use
  Company Number: None

PATIENT
  Age: 73 Year
  Sex: Female
  Weight: 42.18 kg

DRUGS (1)
  1. CIPROFLOXACIN HCL [Suspect]
     Active Substance: CIPROFLOXACIN HYDROCHLORIDE
     Indication: CYSTITIS
     Dosage: 1 PILL 10 DAYS TWICE DAILY TAKEN BY MOUTH
     Route: 048
     Dates: start: 20150116, end: 20150123

REACTIONS (4)
  - Muscle spasms [None]
  - Pruritus [None]
  - Activities of daily living impaired [None]
  - Rash pruritic [None]

NARRATIVE: CASE EVENT DATE: 20150116
